FAERS Safety Report 7356071-6 (Version None)
Quarter: 2011Q1

REPORT INFORMATION
  Report Type: 
  Country: None (occurrence: None)
  Receive Date: 20110316
  Receipt Date: 20110315
  Transmission Date: 20110831
  Serious: Yes (Death)
  Sender: FDA-Public Use
  Company Number: US-EISAI INC-E2090-01526-SPO-US

PATIENT
  Sex: Female

DRUGS (1)
  1. ZONEGRAN [Suspect]
     Indication: EPILEPSY
     Dosage: UNKNOWN
     Route: 048
     Dates: start: 20040101

REACTIONS (2)
  - CONVULSION [None]
  - METABOLIC ACIDOSIS [None]
